FAERS Safety Report 5109983-8 (Version None)
Quarter: 2006Q3

REPORT INFORMATION
  Report Type: 
  Country: None (occurrence: None)
  Receive Date: 20060918
  Receipt Date: 20060918
  Transmission Date: 20061208
  Serious: Yes (Disabling, Other)
  Sender: FDA-Public Use
  Company Number: None

PATIENT
  Sex: Female
  Weight: 81.1939 kg

DRUGS (1)
  1. ESTRATEST H.S. [Suspect]
     Indication: HORMONE REPLACEMENT THERAPY
     Dosage: 1 PILL ONCE DAILY
     Dates: start: 20050101, end: 20060301

REACTIONS (9)
  - ALOPECIA [None]
  - BONE PAIN [None]
  - FATIGUE [None]
  - HAIR TEXTURE ABNORMAL [None]
  - MYALGIA [None]
  - OPEN WOUND [None]
  - SCAR [None]
  - UNEVALUABLE EVENT [None]
  - VISUAL ACUITY REDUCED [None]
